FAERS Safety Report 9225386 (Version 1)
Quarter: 2013Q1

REPORT INFORMATION
  Report Type: Spontaneous
  Country: US (occurrence: None)
  Receive Date: 20120927
  Receipt Date: 20120927
  Transmission Date: 20140127
  Serious: No
  Sender: FDA-Public Use
  Company Number: 2012IP000113

PATIENT
  Age: 27 Year
  Sex: Female

DRUGS (1)
  1. BEPREVE (BEPOTASTINE BESILATE OPHTHALMIC SOLUTION) 1.5% [Suspect]
     Indication: EYE PRURITUS
     Route: 047
     Dates: start: 20120828, end: 20120828

REACTIONS (2)
  - Hypoaesthesia oral [None]
  - Pharyngeal hypoaesthesia [None]
